FAERS Safety Report 25638262 (Version 1)
Quarter: 2025Q3

REPORT INFORMATION
  Report Type: Spontaneous
  Country: US (occurrence: None)
  Receive Date: 20250801
  Receipt Date: 20250801
  Transmission Date: 20251021
  Serious: Yes (Hospitalization)
  Sender: FDA-CTU
  Company Number: None

PATIENT
  Sex: Female

DRUGS (4)
  1. WINREVAIR [Suspect]
     Active Substance: SOTATERCEPT-CSRK
     Indication: Pulmonary arterial hypertension
     Route: 058
     Dates: start: 20250325
  2. VELETRI [Suspect]
     Active Substance: EPOPROSTENOL
  3. SODIUM CHLOR SDV (50ML/FTV) [Concomitant]
  4. NORMAL SALINE FLUSH (10ML) [Concomitant]

REACTIONS (1)
  - Vascular device infection [None]
